FAERS Safety Report 4830503-7 (Version None)
Quarter: 2005Q4

REPORT INFORMATION
  Report Type: 
  Country: None (occurrence: None)
  Receive Date: 20051114
  Receipt Date: 20051101
  Transmission Date: 20060501
  Serious: Yes (Other)
  Sender: FDA-Public Use
  Company Number: USA-2005-0021638

PATIENT
  Age: 34 Year
  Sex: Female

DRUGS (14)
  1. OXYCONTIN [Suspect]
     Indication: CANCER PAIN
     Dosage: 10 MG, Q12H, ORAL
     Route: 048
  2. OXYCODONE HCL [Suspect]
     Indication: CANCER PAIN
     Dosage: PRN
  3. SENOKOT [Concomitant]
  4. LEVOTHYROXINE SODIUM [Concomitant]
  5. ALBUTEROL [Concomitant]
  6. CLARINEX [Concomitant]
  7. MULTIVITAMINS (NICOTINAMIDE, RIBOFLAVIN, THIAMINE HYDROCHLORIDE, RETIN [Concomitant]
  8. VITAMIN C (ASCORBIC ACID) [Concomitant]
  9. VITAMIN E [Concomitant]
  10. MAGNESIUM [Concomitant]
  11. SINGULAIR [Concomitant]
  12. ADVAIR DISKUS 100/50 [Concomitant]
  13. METAMUCIL-2 [Concomitant]
  14. CARAFATE [Concomitant]

REACTIONS (2)
  - INADEQUATE ANALGESIA [None]
  - METASTASES TO LUNG [None]
